FAERS Safety Report 14816054 (Version 2)
Quarter: 2019Q1

REPORT INFORMATION
  Report Type: Spontaneous
  Country: US (occurrence: US)
  Receive Date: 20180426
  Receipt Date: 20190213
  Transmission Date: 20190417
  Serious: No
  Sender: FDA-Public Use
  Company Number: US-PFIZER INC-2018167825

PATIENT
  Age: 58 Year
  Sex: Female

DRUGS (1)
  1. XELJANZ XR [Suspect]
     Active Substance: TOFACITINIB CITRATE
     Dosage: 11 MG, 1X/DAY (Q DAY)
     Route: 048
     Dates: start: 20180226

REACTIONS (3)
  - Nasal discomfort [Recovered/Resolved]
  - Rhinorrhoea [Unknown]
  - Fungal infection [Unknown]

NARRATIVE: CASE EVENT DATE: 2018
